FAERS Safety Report 7010689-9 (Version None)
Quarter: 2010Q3

REPORT INFORMATION
  Report Type: 
  Country: None (occurrence: None)
  Receive Date: 20100923
  Receipt Date: 20100917
  Transmission Date: 20110219
  Serious: Yes (Hospitalization)
  Sender: FDA-Public Use
  Company Number: PHHO2010DE09186

PATIENT
  Sex: Male
  Weight: 88 kg

DRUGS (5)
  1. SIMULECT [Suspect]
     Indication: RENAL TRANSPLANT
     Dosage: 20MG
     Dates: start: 20100511
  2. SIMULECT [Suspect]
     Dosage: 20MG
     Dates: start: 20100515
  3. NO TREATMENT RECEIVED NOMED [Suspect]
     Indication: RENAL TRANSPLANT
     Dosage: NO TREATMENT
  4. SANDIMMUNE [Concomitant]
  5. MYFORTIC [Concomitant]

REACTIONS (6)
  - DEHYDRATION [None]
  - RENAL FAILURE ACUTE [None]
  - RENAL HAEMORRHAGE [None]
  - SURGERY [None]
  - URETERAL CATHETERISATION [None]
  - URINARY INCONTINENCE [None]
